FAERS Safety Report 12553525 (Version 2)
Quarter: 2016Q3

REPORT INFORMATION
  Report Type: Spontaneous
  Country: JP (occurrence: JP)
  Receive Date: 20160713
  Receipt Date: 20160721
  Transmission Date: 20161109
  Serious: Yes (Disabling)
  Sender: FDA-Public Use
  Company Number: JP-GILEAD-2016-0223053

PATIENT
  Age: 57 Year
  Sex: Male

DRUGS (45)
  1. ZOSYN [Concomitant]
     Active Substance: PIPERACILLIN SODIUM\TAZOBACTAM SODIUM
     Indication: SEPSIS
     Route: 041
     Dates: start: 20120924, end: 20121002
  2. CRAVIT [Concomitant]
     Active Substance: LEVOFLOXACIN
     Dosage: 500 MG, QD
     Route: 048
     Dates: start: 20121009, end: 20121115
  3. MEROPEN                            /01250501/ [Concomitant]
     Active Substance: MEROPENEM
     Dosage: 0.5 G, BID
     Route: 041
     Dates: start: 20121005, end: 20121009
  4. LASIX [Concomitant]
     Active Substance: FUROSEMIDE
     Dosage: 20 MG, QD
     Route: 048
     Dates: start: 20121026, end: 20121226
  5. URSO [Concomitant]
     Active Substance: URSODIOL
     Indication: LIVER DISORDER
     Route: 048
     Dates: start: 20121022, end: 20121115
  6. CRAVIT [Concomitant]
     Active Substance: LEVOFLOXACIN
     Indication: SEPSIS
     Route: 041
     Dates: start: 20120927, end: 20121009
  7. MEROPEN                            /01250501/ [Concomitant]
     Active Substance: MEROPENEM
     Dosage: 0.5 G, TID
     Route: 041
     Dates: start: 20121023, end: 20121031
  8. TAKEPRON [Concomitant]
     Active Substance: LANSOPRAZOLE
     Indication: GASTRIC ULCER
     Route: 048
     Dates: start: 20121009, end: 20121213
  9. NAUZELIN [Concomitant]
     Active Substance: DOMPERIDONE
     Indication: NAUSEA
     Route: 048
     Dates: start: 20121121, end: 20121206
  10. FLAGYL [Concomitant]
     Active Substance: METRONIDAZOLE\METRONIDAZOLE HYDROCHLORIDE
     Dosage: 750 MG, BID
     Route: 048
     Dates: start: 20121012, end: 20131122
  11. FLAGYL [Concomitant]
     Active Substance: METRONIDAZOLE\METRONIDAZOLE HYDROCHLORIDE
     Indication: HEPATIC AMOEBIASIS
     Dosage: 250 MG, BID
     Route: 048
     Dates: start: 20120929, end: 20121003
  12. DENOSINE                           /00090105/ [Concomitant]
     Active Substance: ADENOSINE TRIPHOSPHATE
     Indication: CYTOMEGALOVIRUS INFECTION
     Route: 041
     Dates: start: 20121006, end: 20121018
  13. PRODIF [Concomitant]
     Active Substance: FOSFLUCONAZOLE
     Indication: FUNGAL INFECTION
     Route: 042
     Dates: start: 20121027, end: 20121027
  14. DIFLUCAN [Concomitant]
     Active Substance: FLUCONAZOLE
     Indication: FUNGAL INFECTION
     Route: 048
     Dates: start: 20121029, end: 20121115
  15. INTRALIPOS [Concomitant]
     Active Substance: SOYBEAN OIL
     Indication: MALNUTRITION
     Route: 041
     Dates: start: 20130109, end: 20130305
  16. TRUVADA [Suspect]
     Active Substance: EMTRICITABINE\TENOFOVIR DISOPROXIL FUMARATE
     Indication: HIV INFECTION
     Dosage: 1 DF, QD
     Route: 048
     Dates: start: 20121022, end: 20130321
  17. ORGARAN [Concomitant]
     Active Substance: DANAPAROID SODIUM
     Indication: DISSEMINATED INTRAVASCULAR COAGULATION
     Dosage: 625 IU, QD
     Route: 042
     Dates: start: 20120925, end: 20120929
  18. ISENTRESS [Concomitant]
     Active Substance: RALTEGRAVIR POTASSIUM
     Indication: HIV INFECTION
     Route: 048
     Dates: start: 20121018
  19. SILECE [Concomitant]
     Active Substance: FLUNITRAZEPAM
     Indication: INSOMNIA
     Route: 048
     Dates: start: 20121030, end: 20130204
  20. CLARITH [Concomitant]
     Active Substance: CLARITHROMYCIN
     Indication: PHARYNGITIS
     Route: 048
     Dates: start: 20130208, end: 20130214
  21. ORGARAN [Concomitant]
     Active Substance: DANAPAROID SODIUM
     Dosage: 1250 IU, QD
     Route: 042
     Dates: start: 20121016, end: 20121106
  22. LENDORMIN DAINIPPO [Concomitant]
     Active Substance: BROTIZOLAM
     Indication: INSOMNIA
     Route: 048
     Dates: start: 20121008, end: 20130410
  23. MYSLEE [Concomitant]
     Active Substance: ZOLPIDEM TARTRATE
     Indication: INSOMNIA
     Route: 048
     Dates: start: 20121012, end: 20121108
  24. MIYA-BM [Concomitant]
     Active Substance: CLOSTRIDIUM BUTYRICUM SPORES STRAIN M-55
     Indication: DIARRHOEA
     Route: 048
     Dates: start: 20121016, end: 20121226
  25. CUBICIN [Concomitant]
     Active Substance: DAPTOMYCIN
     Indication: SEPSIS
     Route: 041
     Dates: start: 20121027, end: 20121105
  26. PRODIF [Concomitant]
     Active Substance: FOSFLUCONAZOLE
     Dosage: 100 MG, QD
     Route: 042
     Dates: start: 20121028, end: 20121029
  27. MINOMYCIN [Concomitant]
     Active Substance: MINOCYCLINE HYDROCHLORIDE
     Indication: SEPSIS
     Route: 048
     Dates: start: 20121128, end: 20121213
  28. ALDACTONE A [Concomitant]
     Active Substance: SPIRONOLACTONE
     Indication: RENAL FAILURE
     Route: 048
     Dates: start: 20121203, end: 20121213
  29. ZYPREXA [Concomitant]
     Active Substance: OLANZAPINE
     Indication: BIPOLAR DISORDER
     Route: 048
     Dates: start: 20121204, end: 20130504
  30. ADONA                              /00056903/ [Concomitant]
     Active Substance: CARBAZOCHROME SODIUM SULFONATE
     Indication: HAEMORRHAGE
     Route: 041
     Dates: start: 20121220, end: 20121220
  31. TRANSAMIN [Concomitant]
     Active Substance: TRANEXAMIC ACID
     Indication: HAEMORRHAGE
     Route: 041
     Dates: start: 20121220, end: 20121220
  32. MINOCYCLINE HYDROCHLORIDE. [Concomitant]
     Active Substance: MINOCYCLINE HYDROCHLORIDE
     Indication: SEPSIS
     Route: 041
     Dates: start: 20121228, end: 20130109
  33. CRAVIT [Concomitant]
     Active Substance: LEVOFLOXACIN
     Dosage: 500 MG, QD
     Route: 048
     Dates: start: 20130119, end: 20130207
  34. SERENACE [Concomitant]
     Active Substance: HALOPERIDOL
     Indication: RESTLESSNESS
     Route: 041
     Dates: start: 20121022, end: 20121022
  35. RISPERDAL [Concomitant]
     Active Substance: RISPERIDONE
     Indication: BIPOLAR DISORDER
     Route: 048
     Dates: start: 20121023, end: 20121101
  36. PRIMPERAN [Concomitant]
     Active Substance: METOCLOPRAMIDE HYDROCHLORIDE
     Indication: NAUSEA
     Route: 065
     Dates: start: 20121129, end: 20121129
  37. ZOSYN [Concomitant]
     Active Substance: PIPERACILLIN SODIUM\TAZOBACTAM SODIUM
     Dosage: 4.5 G, TID
     Route: 041
     Dates: start: 20121031, end: 20121105
  38. CRAVIT [Concomitant]
     Active Substance: LEVOFLOXACIN
     Indication: UPPER RESPIRATORY TRACT INFLAMMATION
     Dosage: 500 MG, QD
     Route: 041
     Dates: start: 20121129, end: 20121206
  39. FLAGYL [Concomitant]
     Active Substance: METRONIDAZOLE\METRONIDAZOLE HYDROCHLORIDE
     Dosage: 500 MG, BID
     Route: 048
     Dates: start: 20121004, end: 20121011
  40. MEROPEN                            /01250501/ [Concomitant]
     Active Substance: MEROPENEM
     Indication: SEPSIS
     Route: 041
     Dates: start: 20121003, end: 20121004
  41. DENOSINE                           /00090105/ [Concomitant]
     Active Substance: ADENOSINE TRIPHOSPHATE
     Dosage: 250 MG, QD
     Route: 041
     Dates: start: 20121019, end: 20121024
  42. LASIX [Concomitant]
     Active Substance: FUROSEMIDE
     Indication: RENAL FAILURE
     Dosage: 20 MG, QD
     Route: 065
     Dates: start: 20121015, end: 20121025
  43. MUCOSTA [Concomitant]
     Active Substance: REBAMIPIDE
     Indication: GASTRIC ULCER
     Route: 048
     Dates: start: 20121016, end: 20121226
  44. SEROQUEL [Concomitant]
     Active Substance: QUETIAPINE FUMARATE
     Indication: BIPOLAR DISORDER
     Route: 048
     Dates: start: 20121102, end: 20121203
  45. PARIET [Concomitant]
     Active Substance: RABEPRAZOLE SODIUM
     Indication: GASTRIC ULCER
     Route: 048
     Dates: start: 20121214, end: 20121226

REACTIONS (2)
  - Neuropathy peripheral [Unknown]
  - Motor dysfunction [Unknown]
